FAERS Safety Report 7928508-2 (Version None)
Quarter: 2011Q4

REPORT INFORMATION
  Report Type: 
  Country: None (occurrence: None)
  Receive Date: 20111118
  Receipt Date: 20111108
  Transmission Date: 20120403
  Serious: Yes (Death, Other)
  Sender: FDA-Public Use
  Company Number: CA-ELI_LILLY_AND_COMPANY-CA201111002409

PATIENT
  Age: 40 Year
  Sex: Female

DRUGS (4)
  1. PROZAC [Suspect]
     Dosage: 60 MG, UNK
  2. ABILIFY [Concomitant]
     Dosage: 20 MG, UNK
  3. TOPAMAX [Concomitant]
     Dosage: 100 MG, UNK
  4. CONCERTA [Concomitant]
     Dosage: 90 MG, UNK

REACTIONS (1)
  - CARDIAC ARREST [None]
